FAERS Safety Report 24573011 (Version 1)
Quarter: 2024Q4

REPORT INFORMATION
  Report Type: Spontaneous
  Country: AU (occurrence: AU)
  Receive Date: 20241101
  Receipt Date: 20241101
  Transmission Date: 20250114
  Serious: Yes (Hospitalization)
  Sender: BRAEBURN PHARMACEUTICALS
  Company Number: AU-CAMURUS AB-AU-CAM-24-01458

PATIENT
  Weight: 3.06 kg

DRUGS (1)
  1. BUPRENORPHINE [Suspect]
     Active Substance: BUPRENORPHINE
     Indication: Product used for unknown indication
     Dosage: 16 MILLIGRAM, WEEKLY
     Route: 064
     Dates: start: 202211

REACTIONS (2)
  - Meconium aspiration syndrome [Unknown]
  - Maternal exposure during pregnancy [Unknown]
